FAERS Safety Report 8789718 (Version 2)
Quarter: 2014Q1

REPORT INFORMATION
  Report Type: Spontaneous
  Country: US (occurrence: None)
  Receive Date: 20120905
  Receipt Date: 20130923
  Transmission Date: 20141002
  Serious: Yes (Death)
  Sender: FDA-Public Use
  Company Number: 2012ST000649

PATIENT
  Age: 58 Year
  Sex: Male

DRUGS (1)
  1. MATULANE CAPSULES [Suspect]
     Indication: NASAL CAVITY CANCER
     Route: 048
     Dates: start: 2012

REACTIONS (1)
  - Death [None]
